FAERS Safety Report 10802654 (Version 1)
Quarter: 2015Q1

REPORT INFORMATION
  Report Type: Report from Study
  Country: US (occurrence: US)
  Receive Date: 20150217
  Receipt Date: 20150217
  Transmission Date: 20150721
  Serious: Yes (Hospitalization)
  Sender: FDA-Public Use
  Company Number: US-BAYER-2015-018351

PATIENT
  Age: 40 Year
  Sex: Female

DRUGS (6)
  1. LETAIRIS [Concomitant]
     Active Substance: AMBRISENTAN
  2. MEDROXYPROGESTERONE [Concomitant]
     Active Substance: MEDROXYPROGESTERONE
  3. ADEMPAS [Suspect]
     Active Substance: RIOCIGUAT
     Indication: COR PULMONALE CHRONIC
     Dosage: 2 MG, TID
     Route: 048
     Dates: start: 20150106, end: 20150205
  4. MELATONIN [Concomitant]
     Active Substance: MELATONIN
  5. ZAROXOLYN [Concomitant]
     Active Substance: METOLAZONE
  6. KLONOPIN [Concomitant]
     Active Substance: CLONAZEPAM

REACTIONS (13)
  - Nausea [None]
  - Asthenia [None]
  - Malaise [None]
  - Diarrhoea [None]
  - Drug ineffective [None]
  - Vomiting [None]
  - Oxygen saturation decreased [None]
  - Dyspnoea [None]
  - Anxiety [None]
  - Constipation [None]
  - Weight decreased [None]
  - Cor pulmonale chronic [None]
  - Dizziness [None]

NARRATIVE: CASE EVENT DATE: 20150205
